FAERS Safety Report 16325333 (Version 2)
Quarter: 2019Q3

REPORT INFORMATION
  Report Type: Spontaneous
  Country: US (occurrence: US)
  Receive Date: 20190517
  Receipt Date: 20190722
  Transmission Date: 20191004
  Serious: No
  Sender: FDA-Public Use
  Company Number: US-VIFOR (INTERNATIONAL) INC.-VIT-2019-04301

PATIENT
  Sex: Male
  Weight: 68.5 kg

DRUGS (1)
  1. VELPHORO [Suspect]
     Active Substance: FERRIC OXYHYDROXIDE
     Indication: PHOSPHORUS METABOLISM DISORDER
     Route: 048

REACTIONS (2)
  - Product taste abnormal [Unknown]
  - Inappropriate schedule of product administration [Unknown]
